FAERS Safety Report 10084140 (Version 2)
Quarter: 2015Q2

REPORT INFORMATION
  Report Type: Report from Study
  Country: GR (occurrence: GR)
  Receive Date: 20140417
  Receipt Date: 20150520
  Transmission Date: 20150821
  Serious: Yes (Hospitalization, Other)
  Sender: FDA-Public Use
  Company Number: GR-NOVOPROD-406445

PATIENT
  Sex: Male
  Weight: 1.64 kg

DRUGS (2)
  1. INSULIN DETEMIR PENFILL [Suspect]
     Active Substance: INSULIN DETEMIR
     Dosage: UNK
     Route: 064
     Dates: start: 20131203, end: 20131222
  2. INSULIN DETEMIR PENFILL [Suspect]
     Active Substance: INSULIN DETEMIR
     Indication: GESTATIONAL DIABETES
     Dosage: UNK
     Route: 064
     Dates: start: 20131203, end: 20131222

REACTIONS (3)
  - Low birth weight baby [Recovered/Resolved]
  - Foetal exposure during pregnancy [Recovered/Resolved]
  - Premature baby [Unknown]

NARRATIVE: CASE EVENT DATE: 201312
